FAERS Safety Report 6478207-1 (Version None)
Quarter: 2009Q4

REPORT INFORMATION
  Report Type: 
  Country: None (occurrence: None)
  Receive Date: 20091207
  Receipt Date: 20091202
  Transmission Date: 20100525
  Serious: Yes (Hospitalization)
  Sender: FDA-Public Use
  Company Number: IT-SP-2009-04766

PATIENT
  Age: 58 Year
  Sex: Male

DRUGS (1)
  1. BCG  THERAPEUTICS [Suspect]
     Indication: BLADDER CANCER
     Route: 043

REACTIONS (7)
  - BOVINE TUBERCULOSIS [None]
  - DYSPNOEA [None]
  - HYPOXIA [None]
  - PENILE SWELLING [None]
  - PLEURAL FIBROSIS [None]
  - PRODUCTIVE COUGH [None]
  - PYREXIA [None]
